FAERS Safety Report 9323641 (Version 2)
Quarter: 2013Q2

REPORT INFORMATION
  Report Type: Report from Study
  Country: EG (occurrence: EG)
  Receive Date: 20130603
  Receipt Date: 20130620
  Transmission Date: 20140414
  Serious: Yes (Hospitalization)
  Sender: FDA-Public Use
  Company Number: PHHO2013EG006277

PATIENT
  Age: 17 Year
  Sex: Female
  Weight: 48 kg

DRUGS (5)
  1. ICL670A [Suspect]
     Indication: IRON OVERLOAD
     Dosage: 2000 MG, UNK
     Dates: start: 20110816, end: 20130430
  2. ICL670A [Suspect]
     Dosage: UNK
     Dates: start: 20130506
  3. DESFERAL [Suspect]
     Indication: IRON OVERLOAD
     Dosage: 2000 MG, UNK
     Dates: start: 20110816, end: 20130430
  4. DESFERAL [Suspect]
     Dates: start: 20130506
  5. INSULIN [Concomitant]
     Indication: DIABETES MELLITUS
     Dosage: 80 IU, UNK
     Route: 058
     Dates: start: 20061214

REACTIONS (1)
  - Pharyngitis [Recovered/Resolved]
